FAERS Safety Report 25152284 (Version 1)
Quarter: 2025Q2

REPORT INFORMATION
  Report Type: Spontaneous
  Country: US (occurrence: US)
  Receive Date: 20250402
  Receipt Date: 20250402
  Transmission Date: 20250717
  Serious: No
  Sender: MERCK SHARP & DOHME LLC
  Company Number: US-PFIZER INC-202500021491

PATIENT
  Age: 65 Year
  Sex: Female

DRUGS (3)
  1. TUCATINIB [Suspect]
     Active Substance: TUCATINIB
     Dosage: FOR 30 DAYS; STRENGTH: 150MG
     Route: 048
  2. TRASTUZUMAB [Suspect]
     Active Substance: TRASTUZUMAB
  3. ZOMETA [Suspect]
     Active Substance: ZOLEDRONIC ACID

REACTIONS (2)
  - Off label use [Unknown]
  - Product use issue [Unknown]
